FAERS Safety Report 15730104 (Version 1)
Quarter: 2018Q4

REPORT INFORMATION
  Report Type: Spontaneous
  Country: US (occurrence: US)
  Receive Date: 20181217
  Receipt Date: 20181217
  Transmission Date: 20190205
  Serious: Yes (Other)
  Sender: FDA-Public Use
  Company Number: US-SA-2017SA238528

PATIENT
  Age: 59 Year
  Sex: Male

DRUGS (2)
  1. AUBAGIO [Suspect]
     Active Substance: TERIFLUNOMIDE
     Dosage: 14 MG,QD
     Route: 048
  2. AUBAGIO [Suspect]
     Active Substance: TERIFLUNOMIDE
     Indication: MULTIPLE SCLEROSIS
     Dosage: 14 MG,QD
     Route: 048
     Dates: start: 20170908

REACTIONS (11)
  - Balance disorder [Unknown]
  - Multiple sclerosis relapse [Unknown]
  - Cognitive disorder [Unknown]
  - Musculoskeletal stiffness [Unknown]
  - Vision blurred [Unknown]
  - Pain [Unknown]
  - Muscle spasticity [Unknown]
  - Burning sensation [Unknown]
  - Sexual dysfunction [Unknown]
  - Fatigue [Unknown]
  - Sensory disturbance [Unknown]
